FAERS Safety Report 8349491-4 (Version None)
Quarter: 2012Q2

REPORT INFORMATION
  Report Type: 
  Country: None (occurrence: None)
  Receive Date: 20120510
  Receipt Date: 20100929
  Transmission Date: 20120825
  Serious: No
  Sender: FDA-Public Use
  Company Number: US-TEVA-2010005186

PATIENT
  Sex: Male
  Weight: 65.83 kg

DRUGS (6)
  1. FOLIC ACID [Concomitant]
     Dates: start: 20100801
  2. LAMOTRIGINE [Concomitant]
     Indication: DEPRESSION
     Dates: start: 20100601
  3. NUVIGIL [Suspect]
     Indication: CIRCADIAN RHYTHM SLEEP DISORDER
     Dosage: 250 MILLIGRAM;
     Route: 048
     Dates: start: 20100801
  4. RISPERIDONE [Concomitant]
     Indication: SCHIZOPHRENIA, PARANOID TYPE
     Dates: start: 20060101
  5. ABILIFY [Concomitant]
     Dates: start: 20100801
  6. CITALOPRAM HYDROBROMIDE [Concomitant]
     Dates: start: 20100101

REACTIONS (2)
  - HALLUCINATION [None]
  - SCHIZOPHRENIA, PARANOID TYPE [None]
